FAERS Safety Report 8484293-X (Version None)
Quarter: 2012Q3

REPORT INFORMATION
  Report Type: 
  Country: None (occurrence: None)
  Receive Date: 20120703
  Receipt Date: 20120619
  Transmission Date: 20120928
  Serious: Yes (Death, Other)
  Sender: FDA-Public Use
  Company Number: GR-RANBAXY-2011R1-43576

PATIENT
  Age: 67 Year
  Sex: Female

DRUGS (4)
  1. RAMIPRIL [Concomitant]
     Indication: HYPERTENSION
     Dosage: 5 MG, BID
     Route: 065
  2. TEICOPLANIN [Concomitant]
     Indication: INFECTION
     Dosage: UNK
     Route: 065
  3. METFORMIN HCL [Suspect]
     Indication: DIABETES MELLITUS
     Dosage: 850 MG, TID
     Route: 065
  4. TERAZOSIN HCL [Concomitant]
     Indication: HYPERTENSION
     Dosage: 2.5 MG, BID
     Route: 065

REACTIONS (6)
  - DECREASED APPETITE [None]
  - ASTHENIA [None]
  - HYPOPHOSPHATAEMIA [None]
  - RECTAL TENESMUS [None]
  - MEDICATION ERROR [None]
  - DIARRHOEA [None]
